FAERS Safety Report 7402447-8 (Version None)
Quarter: 2011Q1

REPORT INFORMATION
  Report Type: 
  Country: None (occurrence: None)
  Receive Date: 20110331
  Receipt Date: 20110323
  Transmission Date: 20110831
  Serious: Yes (Hospitalization)
  Sender: FDA-Public Use
  Company Number: IND1-FR-2010-0082

PATIENT
  Age: 58 Year
  Sex: Male

DRUGS (10)
  1. SULFASALAZINE [Suspect]
     Indication: PSORIASIS
     Dosage: 3000 MG (500 MG, 2 IN 8 HR), ORAL
     Route: 048
     Dates: start: 20100529, end: 20100719
  2. MALARONE [Suspect]
     Indication: PRODUCT USED FOR UNKNOWN INDICATION
     Dates: start: 20100604, end: 20100627
  3. INDOCIN [Suspect]
     Indication: PSORIASIS
     Dosage: 150 MG (25MG 2IN 8 HR)
     Route: 048
     Dates: start: 20100529, end: 20100720
  4. PREDNISOLONE [Suspect]
     Indication: PRODUCT USED FOR UNKNOWN INDICATION
     Dates: start: 20100710, end: 20100701
  5. EBASTINE [Suspect]
     Indication: PRODUCT USED FOR UNKNOWN INDICATION
     Dates: start: 20100710, end: 20100701
  6. JOSACYNE (JOSAMYCIN) [Suspect]
     Indication: PRODUCT USED FOR UNKNOWN INDICATION
     Dates: start: 20100717, end: 20100701
  7. ACETAMINOPHEN [Suspect]
     Indication: PRODUCT USED FOR UNKNOWN INDICATION
     Dates: start: 20100501, end: 20100701
  8. CLARITHROMYCIN [Suspect]
     Indication: PRODUCT USED FOR UNKNOWN INDICATION
     Dates: start: 20100710, end: 20100715
  9. POLERY (CODEINE, ETHYLMORPHINE, SODIUM BENZOATE, SODIUM BROMIDE, ACONI [Suspect]
     Indication: PRODUCT USED FOR UNKNOWN INDICATION
     Dates: start: 20100717, end: 20100701
  10. NATRIUM BICARBONATE [Suspect]
     Indication: PRODUCT USED FOR UNKNOWN INDICATION
     Dates: start: 20100701, end: 20100701

REACTIONS (6)
  - GENERAL PHYSICAL HEALTH DETERIORATION [None]
  - COUGH [None]
  - DRUG RASH WITH EOSINOPHILIA AND SYSTEMIC SYMPTOMS [None]
  - PYREXIA [None]
  - CHOLESTASIS [None]
  - LYMPHADENOPATHY [None]
